FAERS Safety Report 4408218-9 (Version None)
Quarter: 2004Q3

REPORT INFORMATION
  Report Type: 
  Country: None (occurrence: None)
  Receive Date: 20040722
  Receipt Date: 20040712
  Transmission Date: 20050211
  Serious: Yes (Disabling)
  Sender: FDA-Public Use
  Company Number: 2004222167GB

PATIENT
  Age: 45 Year
  Sex: Female

DRUGS (3)
  1. DOSTINEX [Suspect]
     Dosage: 0.5 MG, QD, ORAL
     Route: 048
  2. CARBAMAZEPINE [Suspect]
     Dosage: 400 MG, BID, ORAL
     Route: 048
  3. FOSAMAX [Concomitant]

REACTIONS (1)
  - HYPONATRAEMIA [None]
